FAERS Safety Report 8999807 (Version 1)
Quarter: 2013Q1

REPORT INFORMATION
  Report Type: Spontaneous
  Country: None (occurrence: US)
  Receive Date: 20130102
  Receipt Date: 20130102
  Transmission Date: 20140127
  Serious: Yes (Disabling, Other)
  Sender: FDA-Public Use
  Company Number: US-TEVA-377954USA

PATIENT
  Sex: Female

DRUGS (13)
  1. SEASONIQUE [Suspect]
     Indication: MENOPAUSAL SYMPTOMS
     Dates: start: 2010
  2. LAMICTAL [Interacting]
     Indication: BIPOLAR DISORDER
     Route: 048
     Dates: start: 2004
  3. PROMETRIUM [Interacting]
     Indication: MENOPAUSAL SYMPTOMS
     Dates: start: 20110205
  4. PROMETRIUM [Interacting]
     Dates: start: 201202
  5. PROMETRIUM [Interacting]
     Dates: start: 201207
  6. PROZAC [Concomitant]
  7. BUSPAR [Concomitant]
  8. IRON [Concomitant]
  9. VITAMIN C [Concomitant]
  10. MULTIVITAMIN [Concomitant]
  11. VITAMIN D3 [Concomitant]
  12. LEVOXYL [Concomitant]
  13. ACIPHEX [Concomitant]

REACTIONS (4)
  - Bipolar disorder [Not Recovered/Not Resolved]
  - Drug interaction [Unknown]
  - Asthenia [Not Recovered/Not Resolved]
  - Depression [Not Recovered/Not Resolved]
